FAERS Safety Report 23063473 (Version 1)
Quarter: 2023Q4

REPORT INFORMATION
  Report Type: Spontaneous
  Country: US (occurrence: US)
  Receive Date: 20231013
  Receipt Date: 20231013
  Transmission Date: 20240110
  Serious: No
  Sender: FDA-Public Use
  Company Number: US-TAKEDA-2023TUS096972

PATIENT
  Sex: Female

DRUGS (1)
  1. VYVANSE [Suspect]
     Active Substance: LISDEXAMFETAMINE DIMESYLATE
     Indication: Product used for unknown indication
     Dosage: 40 MILLIGRAM
     Route: 065

REACTIONS (6)
  - Brain fog [Unknown]
  - Disturbance in attention [Unknown]
  - Drug ineffective [Unknown]
  - Product physical issue [Unknown]
  - Product preparation issue [Unknown]
  - Product dose omission issue [Unknown]
